FAERS Safety Report 4548042-X (Version None)
Quarter: 2004Q4

REPORT INFORMATION
  Report Type: 
  Country: None (occurrence: None)
  Receive Date: 20041220
  Receipt Date: 20040426
  Transmission Date: 20050328
  Serious: Yes (Hospitalization)
  Sender: FDA-Public Use
  Company Number: USA040465944

PATIENT
  Age: 51 Year
  Sex: Male

DRUGS (8)
  1. HUMULIN 70/30 [Suspect]
     Dates: start: 19940101
  2. HUMULIN R [Suspect]
     Dates: start: 19940101
  3. ATENOLOL [Concomitant]
  4. LISINOPRIL [Concomitant]
  5. PRAVACHOL [Concomitant]
  6. NITROGLYCERIN [Concomitant]
  7. ASPIRIN [Concomitant]
  8. FISH OIL [Concomitant]

REACTIONS (7)
  - BLOOD GLUCOSE DECREASED [None]
  - BLOOD GLUCOSE INCREASED [None]
  - EXTRASYSTOLES [None]
  - FEELING ABNORMAL [None]
  - GUILLAIN-BARRE SYNDROME [None]
  - HYPERHIDROSIS [None]
  - LOSS OF CONSCIOUSNESS [None]
